FAERS Safety Report 7685831-7 (Version None)
Quarter: 2011Q3

REPORT INFORMATION
  Report Type: 
  Country: None (occurrence: None)
  Receive Date: 20110816
  Receipt Date: 20110805
  Transmission Date: 20111222
  Serious: Yes (Congenital Anomaly)
  Sender: FDA-Public Use
  Company Number: FR-ROCHE-795189

PATIENT
  Sex: Male
  Weight: 3.8 kg

DRUGS (2)
  1. TAMIFLU [Suspect]
     Dosage: 2 DOSE FORMS FOR 5 DAYS
     Route: 064
     Dates: start: 20091128
  2. SPASFON [Suspect]
     Route: 064
     Dates: start: 20091112

REACTIONS (1)
  - CRYPTORCHISM [None]
